FAERS Safety Report 18341683 (Version 2)
Quarter: 2020Q4

REPORT INFORMATION
  Report Type: Report from Study
  Country: None (occurrence: US)
  Receive Date: 20201005
  Receipt Date: 20201023
  Transmission Date: 20210113
  Serious: Yes (Other)
  Sender: FDA-Public Use
  Company Number: US-ABBVIE-20K-163-3585909-00

PATIENT
  Age: 71 Year
  Sex: Female

DRUGS (1)
  1. VENCLEXTA [Suspect]
     Active Substance: VENETOCLAX
     Indication: PANCYTOPENIA
     Dosage: TAKE 2 TABLET(S) BY MOUTH ONCE DAILY WITH FOOD
     Route: 048

REACTIONS (3)
  - Adverse drug reaction [Unknown]
  - Off label use [Unknown]
  - Biopsy bone marrow [Unknown]

NARRATIVE: CASE EVENT DATE: 20200924
